FAERS Safety Report 14271256 (Version 1)
Quarter: 2017Q4

REPORT INFORMATION
  Report Type: Spontaneous
  Country: CH (occurrence: CH)
  Receive Date: 20171211
  Receipt Date: 20171211
  Transmission Date: 20180321
  Serious: Yes (Other)
  Sender: FDA-Public Use
  Company Number: CH-SA-2017SA240897

PATIENT
  Sex: Female
  Weight: 3.3 kg

DRUGS (5)
  1. COAPROVEL [Suspect]
     Active Substance: HYDROCHLOROTHIAZIDE\IRBESARTAN
     Indication: FOETAL EXPOSURE TIMING UNSPECIFIED
     Route: 064
     Dates: start: 2016, end: 20170417
  2. METFORMIN [Suspect]
     Active Substance: METFORMIN HYDROCHLORIDE
     Indication: MATERNAL CONDITION AFFECTING FOETUS
     Route: 064
     Dates: start: 2013, end: 20170417
  3. TRESIBA [Suspect]
     Active Substance: INSULIN DEGLUDEC
     Indication: MATERNAL CONDITION AFFECTING FOETUS
     Route: 064
     Dates: start: 2014
  4. TRANDATE [Suspect]
     Active Substance: LABETALOL HYDROCHLORIDE
     Indication: FOETAL EXPOSURE TIMING UNSPECIFIED
     Route: 064
     Dates: start: 20170417
  5. HUMALOG [Suspect]
     Active Substance: INSULIN LISPRO
     Indication: MATERNAL CONDITION AFFECTING FOETUS
     Route: 064
     Dates: start: 2013

REACTIONS (2)
  - Foetal exposure during pregnancy [Unknown]
  - Hypoglycaemia neonatal [Recovered/Resolved]

NARRATIVE: CASE EVENT DATE: 20170920
